FAERS Safety Report 5573602-7 (Version None)
Quarter: 2007Q4

REPORT INFORMATION
  Report Type: 
  Country: None (occurrence: None)
  Receive Date: 20071226
  Receipt Date: 20071214
  Transmission Date: 20080405
  Serious: Yes (Other)
  Sender: FDA-Public Use
  Company Number: US-BAYER-US-2006-039894

PATIENT
  Age: 23 Year
  Sex: Female
  Weight: 122 kg

DRUGS (1)
  1. MIRENA [Suspect]
     Indication: CONTRACEPTION
     Route: 015
     Dates: start: 20060615

REACTIONS (4)
  - ABORTION MISSED [None]
  - ELECTIVE PROCEDURE [None]
  - INTRA-UTERINE CONTRACEPTIVE DEVICE EXPELLED [None]
  - PREGNANCY WITH CONTRACEPTIVE DEVICE [None]
